FAERS Safety Report 21532627 (Version 1)
Quarter: 2022Q4

REPORT INFORMATION
  Report Type: Spontaneous
  Country: FR (occurrence: FR)
  Receive Date: 20221101
  Receipt Date: 20221101
  Transmission Date: 20230112
  Serious: Yes (Other)
  Sender: FDA-Public Use
  Company Number: FR-SUN PHARMACEUTICAL INDUSTRIES LTD-2022RR-361309

PATIENT
  Age: 41 Year
  Sex: Female

DRUGS (3)
  1. RIVAROXABAN [Suspect]
     Active Substance: RIVAROXABAN
     Indication: Anticoagulant therapy
     Dosage: 20 MILLIGRAM, DAILY
     Route: 065
  2. HYDROXYCHLOROQUINE [Suspect]
     Active Substance: HYDROXYCHLOROQUINE
     Indication: Antiphospholipid syndrome
     Dosage: UNK
     Route: 065
  3. FLUINDIONE [Suspect]
     Active Substance: FLUINDIONE
     Indication: Anticoagulant therapy
     Dosage: UNK
     Route: 065

REACTIONS (2)
  - Drug ineffective [Unknown]
  - Disease recurrence [Unknown]
